FAERS Safety Report 5002286-1 (Version None)
Quarter: 2006Q2

REPORT INFORMATION
  Report Type: 
  Country: None (occurrence: None)
  Receive Date: 20060508
  Receipt Date: 20060421
  Transmission Date: 20061013
  Serious: Yes (Other)
  Sender: FDA-Public Use
  Company Number: 2006BH008634

PATIENT
  Sex: Male

DRUGS (3)
  1. HEMOFIL (FACTOR VIII (ANTIHAEMOPHILICT FACTOR)) [Suspect]
     Indication: FACTOR VIII DEFICIENCY
     Dates: start: 19780101, end: 19860101
  2. FACTOR VIII (ANTIHAEMOPHILIC FACTOR) (FACTOR VIII (ANTIHAEMOPHILIC FAC [Suspect]
     Indication: FACTOR VIII DEFICIENCY
     Dates: start: 19780101, end: 19890101
  3. PLASMA CRYOPRECIPITATE [Suspect]
     Indication: FACTOR VIII DEFICIENCY
     Dates: start: 19780101

REACTIONS (4)
  - HEPATITIS A [None]
  - HEPATITIS B [None]
  - HEPATITIS C [None]
  - HIV INFECTION [None]
